FAERS Safety Report 9066941 (Version 2)
Quarter: 2013Q1

REPORT INFORMATION
  Report Type: Report from Study
  Country: JP (occurrence: JP)
  Receive Date: 20130214
  Receipt Date: 20130329
  Transmission Date: 20140127
  Serious: Yes (Hospitalization, Other)
  Sender: FDA-Public Use
  Company Number: JP-ABBOTT-12P-087-0892294-00

PATIENT
  Age: 64 None
  Sex: Female
  Weight: 49 kg

DRUGS (13)
  1. HUMIRA [Suspect]
     Indication: RHEUMATOID ARTHRITIS
     Route: 058
     Dates: start: 20110916, end: 20111125
  2. HUMIRA [Suspect]
     Dates: start: 20120608
  3. ETODOLAC [Concomitant]
     Indication: RHEUMATOID ARTHRITIS
     Route: 048
  4. TEPRENONE [Concomitant]
     Indication: GASTRITIS PROPHYLAXIS
     Route: 048
  5. AMLODIPINE BESILATE [Concomitant]
     Indication: PRODUCT USED FOR UNKNOWN INDICATION
     Route: 048
  6. FAMOTIDINE [Concomitant]
     Indication: PRODUCT USED FOR UNKNOWN INDICATION
     Route: 048
  7. SODIUM FERROUS CITRATE [Concomitant]
     Indication: PRODUCT USED FOR UNKNOWN INDICATION
     Route: 048
  8. BUCLADESINE SODIUM [Concomitant]
     Indication: PRODUCT USED FOR UNKNOWN INDICATION
     Route: 062
  9. TRAFERMIN [Concomitant]
     Indication: PRODUCT USED FOR UNKNOWN INDICATION
  10. WARFARIN POTASSIUM [Concomitant]
     Indication: PRODUCT USED FOR UNKNOWN INDICATION
     Route: 048
  11. BERAPROST SODIUM [Concomitant]
     Indication: PRODUCT USED FOR UNKNOWN INDICATION
     Route: 048
  12. ETHYL ICOSAPENTATE [Concomitant]
     Indication: PRODUCT USED FOR UNKNOWN INDICATION
     Route: 048
  13. AZATHIOPRINE [Concomitant]
     Indication: RHEUMATOID ARTHRITIS

REACTIONS (8)
  - Haemangioblastoma [Not Recovered/Not Resolved]
  - Femoral neck fracture [Recovering/Resolving]
  - Fall [Unknown]
  - Pneumonia [Recovered/Resolved]
  - Bacterial sepsis [Recovered/Resolved]
  - Urinary tract infection bacterial [Recovered/Resolved]
  - Proteus infection [Recovered/Resolved]
  - Arthralgia [Not Recovered/Not Resolved]
